FAERS Safety Report 24719091 (Version 1)
Quarter: 2024Q4

REPORT INFORMATION
  Report Type: Spontaneous
  Country: US (occurrence: US)
  Receive Date: 20241210
  Receipt Date: 20241210
  Transmission Date: 20250114
  Serious: No
  Sender: MERCK
  Company Number: US-009507513-2411USA004278

PATIENT
  Age: 42 Year
  Sex: Female
  Weight: 98.9 kg

DRUGS (15)
  1. WINREVAIR [Suspect]
     Active Substance: SOTATERCEPT-CSRK
  2. REMODULIN [Suspect]
     Active Substance: TREPROSTINIL
     Indication: Pulmonary arterial hypertension
     Dosage: 0.034 MICROGRAM/KG (SELF-FILL WITH 1.9 ML PER CASSETTE, RATE OF 20 MCL PER HOUR)
     Route: 058
  3. REMODULIN [Suspect]
     Active Substance: TREPROSTINIL
     Dosage: UNK
     Route: 058
     Dates: start: 20230621
  4. VITAMIN D2 [Concomitant]
     Active Substance: ERGOCALCIFEROL
  5. PEPCID [Concomitant]
     Active Substance: FAMOTIDINE
  6. TYLENOL EXTRA STRENGTH [Concomitant]
     Active Substance: ACETAMINOPHEN
  7. NORVASC [Concomitant]
     Active Substance: AMLODIPINE BESYLATE
  8. TADALAFIL [Concomitant]
     Active Substance: TADALAFIL
  9. LOPERAMIDE [Concomitant]
     Active Substance: LOPERAMIDE
  10. GABAPENTIN [Concomitant]
     Active Substance: GABAPENTIN
  11. FLONASE ALLERGY RELIEF [Concomitant]
     Active Substance: FLUTICASONE PROPIONATE
  12. HYDROCORTISONE [Concomitant]
     Active Substance: HYDROCORTISONE
  13. ZINC [Concomitant]
     Active Substance: ZINC
  14. ZYRTEC [Concomitant]
     Active Substance: CETIRIZINE HYDROCHLORIDE
  15. ONDANSETRON HYDROCHLORIDE [Concomitant]
     Active Substance: ONDANSETRON HYDROCHLORIDE

REACTIONS (2)
  - Haemoglobin increased [Unknown]
  - Haematocrit increased [Unknown]

NARRATIVE: CASE EVENT DATE: 20240901
